FAERS Safety Report 12751375 (Version 2)
Quarter: 2016Q3

REPORT INFORMATION
  Report Type: Spontaneous
  Country: US (occurrence: US)
  Receive Date: 20160915
  Receipt Date: 20160923
  Transmission Date: 20161109
  Serious: Yes (Death, Other)
  Sender: FDA-Public Use
  Company Number: US-GLAXOSMITHKLINE-US2016134797

PATIENT
  Age: 90 Year
  Sex: Male

DRUGS (20)
  1. BETHANECHOL [Concomitant]
     Active Substance: BETHANECHOL
  2. DUONEB [Concomitant]
     Active Substance: ALBUTEROL SULFATE\IPRATROPIUM BROMIDE
  3. ASPIRIN. [Concomitant]
     Active Substance: ASPIRIN
  4. COUMADIN [Concomitant]
     Active Substance: WARFARIN SODIUM
  5. FINASTERIDE. [Concomitant]
     Active Substance: FINASTERIDE
  6. FLUTICASONE PROPIONATE NASAL SPRAY [Concomitant]
     Active Substance: FLUTICASONE PROPIONATE
  7. MIRAPEX [Concomitant]
     Active Substance: PRAMIPEXOLE DIHYDROCHLORIDE
  8. TORSEMIDE. [Concomitant]
     Active Substance: TORSEMIDE
  9. ALLOPURINOL. [Concomitant]
     Active Substance: ALLOPURINOL
  10. FLAXSEED [Concomitant]
     Active Substance: FLAX SEED
  11. COREG [Concomitant]
     Active Substance: CARVEDILOL
  12. METOLAZONE. [Concomitant]
     Active Substance: METOLAZONE
  13. TRAZODONE [Concomitant]
     Active Substance: TRAZODONE HYDROCHLORIDE
  14. ADVAIR HFA [Suspect]
     Active Substance: FLUTICASONE PROPIONATE\SALMETEROL XINAFOATE
     Indication: CHRONIC OBSTRUCTIVE PULMONARY DISEASE
     Dosage: 1 PUFF(S), BID
     Route: 055
     Dates: start: 20160714
  15. IRON [Concomitant]
     Active Substance: IRON
  16. MAGNESIUM [Concomitant]
     Active Substance: MAGNESIUM
  17. CLONAZEPAM. [Concomitant]
     Active Substance: CLONAZEPAM
  18. MUCINEX [Concomitant]
     Active Substance: GUAIFENESIN
  19. SIMVASTATIN. [Concomitant]
     Active Substance: SIMVASTATIN
  20. VITAMIN B3 [Concomitant]
     Active Substance: NIACIN

REACTIONS (1)
  - Death [Fatal]

NARRATIVE: CASE EVENT DATE: 20160910
